FAERS Safety Report 22650287 (Version 1)
Quarter: 2023Q2

REPORT INFORMATION
  Report Type: Spontaneous
  Country: JP (occurrence: JP)
  Receive Date: 20230628
  Receipt Date: 20230628
  Transmission Date: 20230722
  Serious: Yes (Death, Other)
  Sender: FDA-Public Use
  Company Number: JP-MTPC-MTPC2023-0009535

PATIENT
  Age: 60 Year

DRUGS (2)
  1. REMICADE [Suspect]
     Active Substance: INFLIXIMAB
     Indication: Crohn^s disease
     Route: 041
  2. AZATHIOPRINE [Suspect]
     Active Substance: AZATHIOPRINE
     Route: 048

REACTIONS (3)
  - Neoplasm [Fatal]
  - Myeloproliferative neoplasm [Recovered/Resolved]
  - Myeloproliferative neoplasm [Unknown]

NARRATIVE: CASE EVENT DATE: 20170624
